FAERS Safety Report 19442597 (Version 1)
Quarter: 2021Q2

REPORT INFORMATION
  Report Type: Other
  Country: US (occurrence: US)
  Receive Date: 20210621
  Receipt Date: 20210621
  Transmission Date: 20210717
  Serious: No
  Sender: FDA-Public Use
  Company Number: US-ACORDA-ACO_168670_2021

PATIENT
  Age: 63 Year
  Sex: Female

DRUGS (2)
  1. INBRIJA [Suspect]
     Active Substance: LEVODOPA
     Indication: PARKINSON^S DISEASE
     Dosage: 2 DOSAGE FORM, PRN, NOT TO EXCEED 5 DOSES A DAY
     Dates: start: 20201224, end: 20210326
  2. INBRIJA [Suspect]
     Active Substance: LEVODOPA
     Indication: ON AND OFF PHENOMENON

REACTIONS (5)
  - Condition aggravated [Recovering/Resolving]
  - Tremor [Recovering/Resolving]
  - Anxiety [Recovering/Resolving]
  - Palpitations [Recovering/Resolving]
  - Back pain [Recovering/Resolving]

NARRATIVE: CASE EVENT DATE: 20211224
